FAERS Safety Report 19740059 (Version 3)
Quarter: 2021Q3

REPORT INFORMATION
  Report Type: Report from Study
  Country: CA (occurrence: CA)
  Receive Date: 20210824
  Receipt Date: 20210930
  Transmission Date: 20211014
  Serious: Yes (Other)
  Sender: FDA-Public Use
  Company Number: CA-EMD SERONO-9258960

PATIENT
  Age: 31 Year
  Sex: Female

DRUGS (3)
  1. CARBAMAZEPINE. [Concomitant]
     Active Substance: CARBAMAZEPINE
     Indication: PRODUCT USED FOR UNKNOWN INDICATION
  2. REBIF [Suspect]
     Active Substance: INTERFERON BETA-1A
     Indication: PRODUCT USED FOR UNKNOWN INDICATION
     Route: 058
     Dates: start: 20181018, end: 202106
  3. BACLOFEN. [Concomitant]
     Active Substance: BACLOFEN
     Indication: PRODUCT USED FOR UNKNOWN INDICATION

REACTIONS (3)
  - Maternal exposure during pregnancy [Recovered/Resolved]
  - Stress [Unknown]
  - Abortion spontaneous [Recovered/Resolved]

NARRATIVE: CASE EVENT DATE: 202107
